FAERS Safety Report 18807275 (Version 1)
Quarter: 2021Q1

REPORT INFORMATION
  Report Type: Spontaneous
  Country: US (occurrence: US)
  Receive Date: 20210128
  Receipt Date: 20210128
  Transmission Date: 20210419
  Serious: No
  Sender: FDA-Public Use
  Company Number: None

PATIENT
  Age: 84 Year
  Sex: Male
  Weight: 77.11 kg

DRUGS (1)
  1. CIMZIA [Suspect]
     Active Substance: CERTOLIZUMAB PEGOL
     Indication: RHEUMATOID ARTHRITIS
     Dosage: INJECT 400MG (2 SYRINGES) SUBCUTANEOUSLY  ON DAY 1, DAY 14, \T\ DAY 28  AS DIRECTED
     Route: 058
     Dates: start: 202012

REACTIONS (2)
  - Transient ischaemic attack [None]
  - SARS-CoV-2 antibody test positive [None]
